FAERS Safety Report 7125403-6 (Version None)
Quarter: 2010Q4

REPORT INFORMATION
  Report Type: 
  Country: None (occurrence: None)
  Receive Date: 20101129
  Receipt Date: 20101118
  Transmission Date: 20110411
  Serious: Yes (Hospitalization)
  Sender: FDA-Public Use
  Company Number: US-JNJFOC-20101107198

PATIENT
  Sex: Female
  Weight: 82 kg

DRUGS (6)
  1. CAELYX [Suspect]
     Indication: OVARIAN CANCER METASTATIC
     Dosage: ON DAY 1 OF A 28 DAY CYCLE, CYCLE 5; TOTAL DOSE 68 MG
     Route: 042
  2. CAELYX [Suspect]
     Dosage: ON DAY 1 OF A 28 DAY CYCLE; CYCLES 1-4
     Route: 042
  3. IMC-3G3 (RH ANTI-PDGFRA MAB) [Suspect]
     Indication: OVARIAN CANCER METASTATIC
     Dosage: ON DAYS 1 AND 14 OF A 28 DAY CYCLE, CYCLES 1-4 AND DAY 1 OF CYCLE 5
     Route: 042
  4. IMC-3G3 (RH ANTI-PDGFRA MAB) [Suspect]
     Dosage: ON DAYS 1 AND 14 OF A 28 DAY CYCLE, DAY 14 DOSE OF CYCLE 5; TOTAL DOSE 1220 MG
     Route: 042
  5. IMC-3G3 (RH ANTI-PDGFRA MAB) [Suspect]
     Dosage: ON DAYS 1 AND 14 OF A 28 DAY CYCLE, CYCLE 6; TOTAL DOSE 1220 MG
     Route: 042
  6. ANTIBIOTIC [Concomitant]
     Indication: RESPIRATORY TRACT INFECTION VIRAL
     Route: 042

REACTIONS (2)
  - DYSPNOEA [None]
  - RESPIRATORY TRACT INFECTION VIRAL [None]
